FAERS Safety Report 21625649 (Version 1)
Quarter: 2022Q4

REPORT INFORMATION
  Report Type: Other
  Country: US (occurrence: None)
  Receive Date: 20221122
  Receipt Date: 20221122
  Transmission Date: 20230112
  Serious: No
  Sender: FDA-Public Use
  Company Number: US-ROCHE-3106460

PATIENT
  Age: 40 Year
  Sex: Female

DRUGS (8)
  1. TRASTUZUMAB [Suspect]
     Active Substance: TRASTUZUMAB
     Indication: HER2 positive breast cancer
     Route: 065
  2. PERTUZUMAB [Suspect]
     Active Substance: PERTUZUMAB
     Indication: HER2 positive breast cancer
     Route: 042
  3. DOCETAXEL [Suspect]
     Active Substance: DOCETAXEL
     Indication: HER2 positive breast cancer
     Route: 065
  4. CARBOPLATIN [Suspect]
     Active Substance: CARBOPLATIN
     Indication: HER2 positive breast cancer
     Route: 065
  5. NERATINIB [Concomitant]
     Active Substance: NERATINIB
     Dosage: INCREASING BY 40 MG EVERY TWO WEEKS (Q2W) UNTIL REACHING THE RECOMMENDED DOSE OF 240 MG/DAY
  6. ANASTROZOLE [Concomitant]
     Active Substance: ANASTROZOLE
  7. GOSERELIN [Concomitant]
     Active Substance: GOSERELIN
  8. ZOLEDRONIC ACID [Concomitant]
     Active Substance: ZOLEDRONIC ACID

REACTIONS (1)
  - Diarrhoea [Recovering/Resolving]
